FAERS Safety Report 24010792 (Version 1)
Quarter: 2024Q2

REPORT INFORMATION
  Report Type: Spontaneous
  Country: US (occurrence: US)
  Receive Date: 20240625
  Receipt Date: 20240625
  Transmission Date: 20240716
  Serious: Yes (Other)
  Sender: FDA-Public Use
  Company Number: US-BIOVITRUM-2024-US-009020

PATIENT
  Age: 89 Year
  Sex: Male

DRUGS (1)
  1. VONJO [Suspect]
     Active Substance: PACRITINIB
     Indication: Myelofibrosis
     Dosage: BID
     Route: 048
     Dates: start: 20231008

REACTIONS (9)
  - Skin cancer [Unknown]
  - Tongue discolouration [Unknown]
  - Contusion [Unknown]
  - Peripheral swelling [Unknown]
  - Pain [Unknown]
  - Poor quality sleep [Unknown]
  - Asthenia [Unknown]
  - Loss of personal independence in daily activities [Unknown]
  - Mass [Unknown]
